FAERS Safety Report 5835473-0 (Version None)
Quarter: 2008Q3

REPORT INFORMATION
  Report Type: 
  Country: None (occurrence: None)
  Receive Date: 20080804
  Receipt Date: 20080717
  Transmission Date: 20090109
  Serious: Yes (Hospitalization)
  Sender: FDA-Public Use
  Company Number: 2008BI017428

PATIENT
  Age: 60 Year
  Sex: Female
  Weight: 112.0385 kg

DRUGS (26)
  1. TYSABRI [Suspect]
     Indication: MULTIPLE SCLEROSIS
     Dosage: 300 MG; QM; IV
     Route: 042
     Dates: start: 20080110
  2. ALBUTEROL (CON.) [Concomitant]
  3. AZMACORT (CON.) [Concomitant]
  4. BACLOFEN (CON.) [Concomitant]
  5. CELEBREX (CON.) [Concomitant]
  6. CRESTOR (CON.) [Concomitant]
  7. LISINOPRIL (CON.) [Concomitant]
  8. LYRICA (CON.) [Concomitant]
  9. MACROBID (CON.) [Concomitant]
  10. NEURONTIN (CON.) [Concomitant]
  11. OXYTROL (CON.) [Concomitant]
  12. K-DUR (CON.) [Concomitant]
  13. PREMARIN (CON.) [Concomitant]
  14. PRILOSEC (CON.) [Concomitant]
  15. REQUIP (CON.) [Concomitant]
  16. SPIRIVA (CON.) [Concomitant]
  17. SYNTHROID (CON.) [Concomitant]
  18. VESICARE (CON.) [Concomitant]
  19. VITAMIN C (CON.) [Concomitant]
  20. VITAMIN D (CON.) [Concomitant]
  21. VITAMIN E (CON.) [Concomitant]
  22. CALCIUM (CON.) [Concomitant]
  23. MAGNESIUM (CON.) [Concomitant]
  24. MULTIVITAMIN (CON.) [Concomitant]
  25. OXYGEN (CON.) [Concomitant]
  26. COPAXONE (CON.) [Concomitant]

REACTIONS (1)
  - LOCALISED INFECTION [None]
